FAERS Safety Report 13912398 (Version 2)
Quarter: 2017Q3

REPORT INFORMATION
  Report Type: Spontaneous
  Country: US (occurrence: US)
  Receive Date: 20170828
  Receipt Date: 20170921
  Transmission Date: 20171127
  Serious: No
  Sender: FDA-Public Use
  Company Number: US-PFIZER INC-2017362911

PATIENT
  Age: 52 Year
  Sex: Female
  Weight: 65.41 kg

DRUGS (3)
  1. METHOTREXATE SODIUM. [Suspect]
     Active Substance: METHOTREXATE SODIUM
     Indication: RHEUMATOID ARTHRITIS
     Dosage: 10 G, WEEKLY
  2. ALEVE [Concomitant]
     Active Substance: NAPROXEN SODIUM
     Dosage: 220 MG, AS NEEDED[EVERY 12 HRS]
     Route: 048
  3. GINGER. [Concomitant]
     Active Substance: GINGER
     Dosage: 500 MG, UNK[TAKES ON OCCASION]
     Route: 048

REACTIONS (7)
  - Influenza like illness [Unknown]
  - Headache [Unknown]
  - Nausea [Unknown]
  - Drug ineffective [Unknown]
  - Drug hypersensitivity [Unknown]
  - Abdominal discomfort [Unknown]
  - Gastric disorder [Unknown]
